FAERS Safety Report 18408933 (Version 6)
Quarter: 2022Q4

REPORT INFORMATION
  Report Type: Spontaneous
  Country: US (occurrence: US)
  Receive Date: 20201020
  Receipt Date: 20221005
  Transmission Date: 20230113
  Serious: Yes (Other)
  Sender: FDA-Public Use
  Company Number: US-PFIZER INC-2019317606

PATIENT
  Age: 53 Year
  Sex: Male
  Weight: 61.23 kg

DRUGS (4)
  1. RAPAMUNE [Suspect]
     Active Substance: SIROLIMUS
     Indication: Heart transplant
     Dosage: 2 MG, DAILY (1MG, 2 TAB PO DAILY)
     Route: 048
  2. RAPAMUNE [Suspect]
     Active Substance: SIROLIMUS
     Dosage: 2 MG, 1X/DAY (1 TABLET BY MOUTH DAILY)
     Route: 048
  3. PREDNISONE [Concomitant]
     Active Substance: PREDNISONE
     Dosage: 2.5 MG, 1X/DAY
  4. TACROLIMUS [Concomitant]
     Active Substance: TACROLIMUS
     Dosage: 7.5 MG, DAILY (3.5MG IN THE MORNING 4MG AT NIGHT)

REACTIONS (5)
  - Muscular dystrophy [Recovered/Resolved]
  - Drug effective for unapproved indication [Unknown]
  - Off label use [Unknown]
  - Rash [Unknown]
  - HLA marker study positive [Unknown]

NARRATIVE: CASE EVENT DATE: 20220930
